FAERS Safety Report 25347145 (Version 1)
Quarter: 2025Q2

REPORT INFORMATION
  Report Type: Spontaneous
  Country: JP (occurrence: JP)
  Receive Date: 20250522
  Receipt Date: 20250522
  Transmission Date: 20250716
  Serious: Yes (Life-Threatening)
  Sender: PFIZER
  Company Number: JP-PFIZER INC-PV202500059936

PATIENT
  Age: 50 Year
  Sex: Female
  Weight: 65 kg

DRUGS (18)
  1. OXALIPLATIN [Suspect]
     Active Substance: OXALIPLATIN
     Indication: Colon cancer
     Route: 041
     Dates: start: 20240830, end: 20250418
  2. OXALIPLATIN [Suspect]
     Active Substance: OXALIPLATIN
     Indication: Colon cancer metastatic
  3. FLUOROURACIL [Concomitant]
     Active Substance: FLUOROURACIL
     Indication: Colon cancer metastatic
  4. FLUOROURACIL [Concomitant]
     Active Substance: FLUOROURACIL
     Indication: Colon cancer
  5. LEVOLEUCOVORIN CALCIUM [Concomitant]
     Active Substance: LEVOLEUCOVORIN CALCIUM
     Indication: Colon cancer metastatic
  6. LEVOLEUCOVORIN CALCIUM [Concomitant]
     Active Substance: LEVOLEUCOVORIN CALCIUM
     Indication: Colon cancer
  7. BEVACIZUMAB [Concomitant]
     Active Substance: BEVACIZUMAB
     Indication: Colon cancer metastatic
  8. BEVACIZUMAB [Concomitant]
     Active Substance: BEVACIZUMAB
     Indication: Colon cancer
  9. LANSOPRAZOLE [Concomitant]
     Active Substance: LANSOPRAZOLE
     Dosage: 1 TABLET PER DOSE, ONCE DAILY AFTER DINNER
     Dates: end: 20250418
  10. HERBALS [Concomitant]
     Active Substance: HERBALS
     Dosage: 1 SACHET PER DOSE, THREE TIMES DAILY BEFORE BREAKFAST, LUNCH, AND DINNER
     Dates: end: 20250418
  11. MAGNESIUM OXIDE [Concomitant]
     Active Substance: MAGNESIUM OXIDE
     Dosage: 2 SACHETS PER DOSE, THREE TIMES DAILY AFTER BREAKFAST, LUNCH, AND DINNER
     Dates: end: 20250418
  12. BIO-THREE [Concomitant]
     Active Substance: HERBALS
     Dosage: 1 SACHET PER DOSE, THREE TIMES DAILY AFTER BREAKFAST, LUNCH, AND DINNER
     Dates: end: 20250418
  13. URSODIOL [Concomitant]
     Active Substance: URSODIOL
     Dosage: 1 TABLET PER DOSE, THREE TIMES DAILY AFTER BREAKFAST, LUNCH, AND DINNER
     Dates: end: 20250418
  14. AZUNOL #1 [Concomitant]
     Dosage: ONCE DAILY TO BE APPLIED AROUND THE ANUS
     Dates: start: 20240407
  15. REPAGLINIDE [Concomitant]
     Active Substance: REPAGLINIDE
     Dosage: 1 TABLET PER DOSE, THREE TIMES DAILY IMMEDIATELY BEFORE BREAKFAST, LUNCH, AND DINNER
     Dates: end: 20250417
  16. INSULIN GLARGINE BS LILLY [Concomitant]
     Dosage: ONCE DAILY, 4 UNITS IN THE MORNING
     Dates: end: 20250417
  17. PALONOSETRON [Concomitant]
     Active Substance: PALONOSETRON
     Dates: start: 20250418
  18. FOSNETUPITANT CHLORIDE HYDROCHLORIDE [Concomitant]
     Active Substance: FOSNETUPITANT CHLORIDE HYDROCHLORIDE
     Dates: start: 20250418

REACTIONS (6)
  - Hypersensitivity [Recovered/Resolved]
  - Palmar erythema [Recovered/Resolved]
  - Feeling hot [Recovered/Resolved]
  - Dyspnoea [Recovered/Resolved]
  - Flushing [Recovered/Resolved]
  - Blood pressure increased [Recovered/Resolved]

NARRATIVE: CASE EVENT DATE: 20250418
